FAERS Safety Report 11475334 (Version 1)
Quarter: 2015Q3

REPORT INFORMATION
  Report Type: Spontaneous
  Country: US (occurrence: None)
  Receive Date: 20150908
  Receipt Date: 20150908
  Transmission Date: 20151125
  Serious: No
  Sender: FDA-Public Use
  Company Number: None

PATIENT
  Age: 38 Year
  Sex: Female
  Weight: 54.89 kg

DRUGS (3)
  1. COGENTIN [Concomitant]
     Active Substance: BENZTROPINE MESYLATE
  2. ZYPREXA [Concomitant]
     Active Substance: OLANZAPINE
  3. RISPERDAL [Suspect]
     Active Substance: RISPERIDONE
     Dosage: 2 PILLS
     Route: 048
     Dates: start: 20150804, end: 20150805

REACTIONS (1)
  - Tongue movement disturbance [None]

NARRATIVE: CASE EVENT DATE: 20150824
